FAERS Safety Report 14325389 (Version 1)
Quarter: 2017Q4

REPORT INFORMATION
  Report Type: Spontaneous
  Country: DE (occurrence: DE)
  Receive Date: 20171226
  Receipt Date: 20171226
  Transmission Date: 20180321
  Serious: Yes (Other)
  Sender: FDA-Public Use
  Company Number: DE-MYLANLABS-2017M1081077

PATIENT
  Age: 53 Year
  Sex: Female

DRUGS (1)
  1. METHOTREXATE. [Suspect]
     Active Substance: METHOTREXATE
     Indication: RHEUMATIC DISORDER
     Dosage: UNK
     Route: 065

REACTIONS (2)
  - Oropharyngeal discolouration [Unknown]
  - Oral disorder [Unknown]
